FAERS Safety Report 4611158-3 (Version None)
Quarter: 2005Q1

REPORT INFORMATION
  Report Type: 
  Country: None (occurrence: None)
  Receive Date: 20050315
  Receipt Date: 20050315
  Transmission Date: 20050727
  Serious: Yes (Hospitalization)
  Sender: FDA-Public Use
  Company Number: None

PATIENT
  Sex: Male
  Weight: 81.6475 kg

DRUGS (6)
  1. ENBREL [Suspect]
     Indication: RHEUMATOID ARTHRITIS
     Dates: start: 19990419
  2. ENBREL [Suspect]
     Indication: RHEUMATOID ARTHRITIS
     Dates: start: 20041001
  3. REMICADE [Suspect]
     Indication: RHEUMATOID ARTHRITIS
     Dates: start: 20050121
  4. REMICADE [Suspect]
     Indication: RHEUMATOID ARTHRITIS
     Dates: start: 20050228
  5. ARAVA [Concomitant]
  6. PREDNISONE [Concomitant]

REACTIONS (4)
  - APATHY [None]
  - BRAIN NEOPLASM [None]
  - HEADACHE [None]
  - HYPERSOMNIA [None]
